FAERS Safety Report 4645954-3 (Version None)
Quarter: 2005Q2

REPORT INFORMATION
  Report Type: 
  Country: None (occurrence: None)
  Receive Date: 20050425
  Receipt Date: 20050415
  Transmission Date: 20051028
  Serious: Yes (Other)
  Sender: FDA-Public Use
  Company Number: 200511580BCC

PATIENT
  Age: 78 Year
  Sex: Male
  Weight: 84.8226 kg

DRUGS (2)
  1. ASPIRIN [Suspect]
     Indication: ANALGESIC EFFECT
     Dosage: PRN, ORAL
     Route: 048
  2. ASPIRIN [Suspect]
     Indication: FATIGUE
     Dosage: PRN, ORAL
     Route: 048

REACTIONS (2)
  - MONOPLEGIA [None]
  - TREATMENT NONCOMPLIANCE [None]
